FAERS Safety Report 4307345-4 (Version None)
Quarter: 2004Q1

REPORT INFORMATION
  Report Type: 
  Country: None (occurrence: None)
  Receive Date: 20040226
  Receipt Date: 20040211
  Transmission Date: 20041129
  Serious: Yes (Hospitalization)
  Sender: FDA-Public Use
  Company Number: US-SHR-03-018762

PATIENT
  Age: 51 Year
  Sex: Male
  Weight: 61.7 kg

DRUGS (4)
  1. BETASERON [Suspect]
     Indication: MULTIPLE SCLEROSIS
     Dosage: 6 MIU, EVERY 2D, SUBCUTANEOUS
     Route: 058
     Dates: start: 20030922, end: 20031123
  2. NEURONTIN [Concomitant]
  3. LIPITOR [Concomitant]
  4. BUPROPION HYDROCHLORIDE [Concomitant]

REACTIONS (4)
  - BLOOD GLUCOSE INCREASED [None]
  - CONDITION AGGRAVATED [None]
  - HEPATIC NEOPLASM MALIGNANT [None]
  - MULTIPLE SCLEROSIS [None]
